FAERS Safety Report 14426901 (Version 15)
Quarter: 2022Q4

REPORT INFORMATION
  Report Type: Spontaneous
  Country: NL (occurrence: NL)
  Receive Date: 20180123
  Receipt Date: 20221013
  Transmission Date: 20230112
  Serious: Yes (Life-Threatening, Hospitalization)
  Sender: FDA-Public Use
  Company Number: None

PATIENT
  Age: 79 Year
  Sex: Male
  Weight: 73 kg

DRUGS (5)
  1. ALLOPURINOL [Suspect]
     Active Substance: ALLOPURINOL
     Indication: Crystalluria
     Dosage: 50 MILLIGRAM DAILY; ALLOPURINOL TABLET 50MG - NON-CURRENT DRUG / BRAND NAME NOT SPECIFIED
     Route: 065
     Dates: start: 20170614, end: 20170711
  2. COLCHICINE [Suspect]
     Active Substance: COLCHICINE
     Indication: Crystalluria
     Dosage: 1 DOSAGE FORMS DAILY; COLCHICINE TABLET 0,5MG / BRAND NAME NOT SPECIFIED
     Route: 065
     Dates: start: 20170614, end: 20170711
  3. INDAPAMIDE\PERINDOPRIL [Suspect]
     Active Substance: INDAPAMIDE\PERINDOPRIL
     Indication: Hypertension
     Dosage: 1 DOSAGE FORMS DAILY; THERAPY END DATE  :ASKU
     Route: 065
     Dates: start: 20170614
  4. LERCANIDIPINE [Suspect]
     Active Substance: LERCANIDIPINE
     Indication: Hypertension
     Dosage: 10 MILLIGRAM DAILY; THERAPY END DATE : ASKU?LERCANIDIPINE TABLET OMHULD 10MG / BRAND NAME NOT SPECIF
     Route: 065
     Dates: start: 20170409
  5. MELATONIN [Concomitant]
     Active Substance: MELATONIN
     Indication: Product used for unknown indication
     Dosage: THERAPY START DATE AND END DATE: ASKU

REACTIONS (6)
  - Thrombocytopenia [Unknown]
  - Leukopenia [Unknown]
  - Systemic inflammatory response syndrome [Unknown]
  - Asthenia [Recovered/Resolved]
  - Multiple organ dysfunction syndrome [Recovered/Resolved]
  - Respiratory failure [Recovered/Resolved]

NARRATIVE: CASE EVENT DATE: 20170701
